FAERS Safety Report 6811479-X (Version None)
Quarter: 2010Q2

REPORT INFORMATION
  Report Type: 
  Country: None (occurrence: None)
  Receive Date: 20100629
  Receipt Date: 20100629
  Transmission Date: 20101027
  Serious: Yes (Other)
  Sender: FDA-Public Use
  Company Number: None

PATIENT
  Age: 29 Year
  Sex: Female
  Weight: 52.1637 kg

DRUGS (1)
  1. CIPROFLOXACIN [Suspect]
     Indication: URINARY TRACT INFECTION
     Dosage: 500MG BID PO
     Route: 048
     Dates: start: 20100616, end: 20100618

REACTIONS (4)
  - ARTHRALGIA [None]
  - JOINT SWELLING [None]
  - MUSCLE TIGHTNESS [None]
  - MYALGIA [None]
